FAERS Safety Report 6203725-0 (Version None)
Quarter: 2009Q2

REPORT INFORMATION
  Report Type: 
  Country: None (occurrence: None)
  Receive Date: 20090523
  Receipt Date: 20090523
  Transmission Date: 20091009
  Serious: Yes (Other)
  Sender: FDA-Public Use
  Company Number: None

PATIENT
  Sex: Female
  Weight: 52.1637 kg

DRUGS (2)
  1. LAMOTRIGINE [Suspect]
     Indication: ANXIETY
     Dosage: 25MG - ONE TABLET PER DAY PO
     Route: 048
     Dates: start: 20090422, end: 20090522
  2. LAMOTRIGINE [Suspect]
     Indication: BIPOLAR DISORDER
     Dosage: 25MG - ONE TABLET PER DAY PO
     Route: 048
     Dates: start: 20090422, end: 20090522

REACTIONS (1)
  - RASH [None]
